FAERS Safety Report 4967215-5 (Version None)
Quarter: 2006Q2

REPORT INFORMATION
  Report Type: 
  Country: None (occurrence: None)
  Receive Date: 20060404
  Receipt Date: 20060324
  Transmission Date: 20061013
  Serious: Yes (Other)
  Sender: FDA-Public Use
  Company Number: US-2006-006929

PATIENT
  Age: 79 Year
  Sex: Female
  Weight: 69.4 kg

DRUGS (1)
  1. MAGNEVIST [Suspect]
     Indication: NUCLEAR MAGNETIC RESONANCE IMAGING BRAIN
     Dosage: 14 ML, 1 DOSE, INTRAVENOUS
     Route: 042
     Dates: start: 20060124, end: 20060124

REACTIONS (4)
  - FEELING COLD [None]
  - PAIN IN EXTREMITY [None]
  - TREMOR [None]
  - VENOUS THROMBOSIS [None]
